FAERS Safety Report 17829695 (Version 1)
Quarter: 2020Q2

REPORT INFORMATION
  Report Type: Spontaneous
  Country: CA (occurrence: CA)
  Receive Date: 20200527
  Receipt Date: 20200527
  Transmission Date: 20200714
  Serious: Yes (Other)
  Sender: FDA-Public Use
  Company Number: CA-PFIZER INC-2020206608

PATIENT
  Age: 56 Year
  Sex: Female

DRUGS (8)
  1. NUCTIS D [Concomitant]
     Dosage: 5 DROP, 1X/DAY
     Route: 065
  2. ARAVA [Concomitant]
     Active Substance: LEFLUNOMIDE
     Dosage: 20 MG, 1X/DAY
     Route: 048
     Dates: start: 2017
  3. SIMVASTATIN. [Concomitant]
     Active Substance: SIMVASTATIN
     Indication: DYSLIPIDAEMIA
     Dosage: 40 MG, 1X/DAY
     Route: 048
  4. PREDNISONE. [Concomitant]
     Active Substance: PREDNISONE
     Dosage: 30 MG, 1X/DAY
     Route: 065
  5. VALSARTAN/HYDROCHLOROTHIAZIDE [Concomitant]
     Active Substance: HYDROCHLOROTHIAZIDE\VALSARTAN
     Indication: HYPERTENSION
     Dosage: 160/25 MG, 1X/DAY
     Route: 065
  6. METHOTREXATE SODIUM. [Suspect]
     Active Substance: METHOTREXATE SODIUM
     Dosage: UNK
     Route: 048
     Dates: start: 201701, end: 201702
  7. LEVOTHYROXINE. [Concomitant]
     Active Substance: LEVOTHYROXINE
     Indication: HYPOTHYROIDISM
     Dosage: 25 UG, 1X/DAY
     Route: 048
  8. CALCIUM VITAMIN D [Concomitant]
     Active Substance: CALCIUM\VITAMIN D
     Dosage: 1 DF, 1X/DAY, (1 ENVELOPE QD)

REACTIONS (4)
  - Headache [Unknown]
  - Nausea [Unknown]
  - Abdominal pain [Unknown]
  - Drug intolerance [Unknown]

NARRATIVE: CASE EVENT DATE: 2017
